FAERS Safety Report 18151072 (Version 5)
Quarter: 2020Q4

REPORT INFORMATION
  Report Type: Spontaneous
  Country: US (occurrence: US)
  Receive Date: 20200814
  Receipt Date: 20201103
  Transmission Date: 20210113
  Serious: Yes (Other)
  Sender: FDA-Public Use
  Company Number: US-PFIZER INC-2020310721

PATIENT
  Age: 47 Year
  Sex: Female

DRUGS (5)
  1. IBRANCE [Interacting]
     Active Substance: PALBOCICLIB
     Dosage: 100 MG
  2. IBRANCE [Interacting]
     Active Substance: PALBOCICLIB
     Dosage: 75 MG
  3. NORCO [Interacting]
     Active Substance: ACETAMINOPHEN\HYDROCODONE BITARTRATE
     Dosage: UNK
  4. IBRANCE [Suspect]
     Active Substance: PALBOCICLIB
     Dosage: 125 MG
     Dates: start: 20200618
  5. IBRANCE [Interacting]
     Active Substance: PALBOCICLIB
     Dosage: 125 MG
     Dates: start: 20200626

REACTIONS (10)
  - Epistaxis [Recovering/Resolving]
  - Fatigue [Unknown]
  - Bone pain [Unknown]
  - Nausea [Recovering/Resolving]
  - Neutrophil count decreased [Unknown]
  - Drug interaction [Unknown]
  - Platelet count decreased [Recovering/Resolving]
  - Diarrhoea [Unknown]
  - Product dose omission in error [Unknown]
  - Neutropenia [Unknown]

NARRATIVE: CASE EVENT DATE: 2020
